FAERS Safety Report 12552339 (Version 1)
Quarter: 2016Q3

REPORT INFORMATION
  Report Type: Spontaneous
  Country: US (occurrence: None)
  Receive Date: 20160712
  Receipt Date: 20160712
  Transmission Date: 20161109
  Serious: Yes (Disabling)
  Sender: FDA-Public Use
  Company Number: None

PATIENT
  Age: 71 Year
  Sex: Female
  Weight: 83.92 kg

DRUGS (11)
  1. ZYRTEC [Concomitant]
     Active Substance: CETIRIZINE HYDROCHLORIDE
  2. WARFARIN [Concomitant]
     Active Substance: WARFARIN
  3. SUDAFED [Concomitant]
     Active Substance: PSEUDOEPHEDRINE HYDROCHLORIDE
  4. DRY MOISTS NASAL SPRAY [Concomitant]
  5. RANITIDINE. [Concomitant]
     Active Substance: RANITIDINE
  6. SALINE NASAL GEL [Concomitant]
  7. TYLENOL [Concomitant]
     Active Substance: ACETAMINOPHEN
  8. SALINE NASAL SPRAY [Concomitant]
     Active Substance: SODIUM CHLORIDE
  9. MUCINEX [Concomitant]
     Active Substance: GUAIFENESIN
  10. NEXIUM 24HR [Suspect]
     Active Substance: ESOMEPRAZOLE MAGNESIUM
     Indication: PROPHYLAXIS
     Dosage: ONCE DAILY - 15 TO 30 MINUTES BEFORE BREASKFAST
     Route: 048
     Dates: start: 20151217, end: 20160506
  11. TUMS [Concomitant]
     Active Substance: CALCIUM CARBONATE

REACTIONS (3)
  - Gastrointestinal pain [None]
  - Arthralgia [None]
  - Abdominal pain upper [None]

NARRATIVE: CASE EVENT DATE: 20160101
